FAERS Safety Report 4630286-X (Version None)
Quarter: 2005Q2

REPORT INFORMATION
  Report Type: 
  Country: None (occurrence: None)
  Receive Date: 20050408
  Receipt Date: 20050404
  Transmission Date: 20051028
  Serious: Yes (Death, Hospitalization)
  Sender: FDA-Public Use
  Company Number: PHBS2005JP04808

PATIENT
  Sex: Male

DRUGS (2)
  1. TAMIFLU [Concomitant]
     Indication: PYREXIA
     Route: 048
  2. VOLTAREN [Suspect]
     Indication: PYREXIA
     Dosage: UNK, UNK
     Route: 054

REACTIONS (2)
  - DISSEMINATED INTRAVASCULAR COAGULATION [None]
  - FALL [None]
